FAERS Safety Report 18640291 (Version 1)
Quarter: 2020Q4

REPORT INFORMATION
  Report Type: Spontaneous
  Country: US (occurrence: US)
  Receive Date: 20201220
  Receipt Date: 20201220
  Transmission Date: 20210114
  Serious: No
  Sender: FDA-Public Use
  Company Number: US-PERRIGO-20US014740

PATIENT
  Sex: Female

DRUGS (2)
  1. MUPIROCIN. [Suspect]
     Active Substance: MUPIROCIN
     Indication: IMPETIGO
     Dosage: UNKNOWN, UNKNOWN
     Route: 061
     Dates: start: 20201011
  2. MUPIROCIN. [Suspect]
     Active Substance: MUPIROCIN
     Indication: ACCIDENTAL EXPOSURE TO PRODUCT
     Dosage: UNK, UNK
     Route: 048
     Dates: start: 20201011

REACTIONS (1)
  - Accidental exposure to product [Unknown]

NARRATIVE: CASE EVENT DATE: 20201011
